FAERS Safety Report 15360722 (Version 2)
Quarter: 2018Q3

REPORT INFORMATION
  Report Type: Spontaneous
  Country: US (occurrence: US)
  Receive Date: 20180907
  Receipt Date: 20180911
  Transmission Date: 20181010
  Serious: No
  Sender: FDA-Public Use
  Company Number: US-PFIZER INC-2018359886

PATIENT
  Age: 68 Year
  Sex: Female
  Weight: 80.73 kg

DRUGS (3)
  1. LYRICA [Suspect]
     Active Substance: PREGABALIN
     Indication: HERPES ZOSTER
     Dosage: 1 DF, THREE TIMES A DAY
     Route: 048
     Dates: start: 201604
  2. LYRICA [Suspect]
     Active Substance: PREGABALIN
     Dosage: 1 DF, TWICE A DAY
     Route: 048
     Dates: start: 20180416
  3. ATORVASTATIN [Concomitant]
     Active Substance: ATORVASTATIN
     Indication: BLOOD CHOLESTEROL INCREASED
     Dosage: 1 DF, 1X/DAY
     Route: 048
     Dates: start: 201808, end: 201808

REACTIONS (1)
  - Alopecia [Not Recovered/Not Resolved]

NARRATIVE: CASE EVENT DATE: 201808
